FAERS Safety Report 9530225 (Version 1)
Quarter: 2013Q3

REPORT INFORMATION
  Report Type: Spontaneous
  Country: US (occurrence: US)
  Receive Date: 20130917
  Receipt Date: 20130917
  Transmission Date: 20140515
  Serious: No
  Sender: FDA-Public Use
  Company Number: US-009507513-1309USA005837

PATIENT
  Sex: Female

DRUGS (2)
  1. IMPLANON [Suspect]
     Route: 059
  2. NEXPLANON [Suspect]
     Route: 059

REACTIONS (1)
  - Overdose [Unknown]
